FAERS Safety Report 24584659 (Version 1)
Quarter: 2024Q4

REPORT INFORMATION
  Report Type: Spontaneous
  Country: FR (occurrence: None)
  Receive Date: 20241105
  Receipt Date: 20241105
  Transmission Date: 20250114
  Serious: Yes (Life-Threatening, Disabling)
  Sender: Public
  Company Number: None

PATIENT
  Age: 75 Year
  Sex: Male
  Weight: 51 kg

DRUGS (9)
  1. MIDAZOLAM [Suspect]
     Active Substance: MIDAZOLAM
     Indication: Cataract operation
  2. SUFENTANIL [Suspect]
     Active Substance: SUFENTANIL
  3. KARDEGIC [Concomitant]
     Active Substance: ASPIRIN DL-LYSINE
  4. BISOPROLOL [Concomitant]
     Active Substance: BISOPROLOL\BISOPROLOL FUMARATE
  5. MIDAZOLAM [Suspect]
     Active Substance: MIDAZOLAM
     Indication: Cataract operation
  6. VITAMINS A [Concomitant]
  7. ASCORBIC ACID [Concomitant]
     Active Substance: ASCORBIC ACID
  8. VITAMINS E [Concomitant]
  9. VITAMINS D [Concomitant]

REACTIONS (5)
  - Asphyxia [None]
  - Dyspnoea [None]
  - Speech disorder [None]
  - Paradoxical drug reaction [None]
  - Troponin I increased [None]

NARRATIVE: CASE EVENT DATE: 20240923
